FAERS Safety Report 16392899 (Version 6)
Quarter: 2019Q3

REPORT INFORMATION
  Report Type: Spontaneous
  Country: JP (occurrence: JP)
  Receive Date: 20190605
  Receipt Date: 20190814
  Transmission Date: 20191004
  Serious: Yes (Life-Threatening, Hospitalization, Other)
  Sender: FDA-Public Use
  Company Number: JP-AMGEN-JPNSP2019086540

PATIENT
  Age: 88 Year
  Sex: Female
  Weight: 39.6 kg

DRUGS (10)
  1. PARSABIV [Suspect]
     Active Substance: ETELCALCETIDE HYDROCHLORIDE
     Dosage: 2.5 MILLIGRAM, 3 TIMES/WK
     Route: 010
     Dates: start: 20190211
  2. NESP [Concomitant]
     Active Substance: DARBEPOETIN ALFA
     Dosage: 10 MICROGRAM, QWK (2018/08/10)
     Route: 051
  3. OXAROL [Concomitant]
     Active Substance: MAXACALCITOL
     Dosage: 2.5 MICROGRAM, 3 TIMES/WK
     Route: 051
     Dates: start: 20180402, end: 20180815
  4. KALIMATE [Concomitant]
     Active Substance: CALCIUM POLYSTYRENE SULFONATE
     Dosage: 25 GRAM, QD
     Route: 048
  5. PARSABIV [Suspect]
     Active Substance: ETELCALCETIDE HYDROCHLORIDE
     Dosage: 2.5 MILLIGRAM, 3 TIMES/WK
     Route: 010
     Dates: start: 20180817, end: 20190125
  6. OXAROL [Concomitant]
     Active Substance: MAXACALCITOL
     Dosage: 5 MICROGRAM, 3 TIMES/WK
     Route: 051
     Dates: start: 20180817, end: 20180919
  7. NESP [Concomitant]
     Active Substance: DARBEPOETIN ALFA
     Dosage: 20 MICROGRAM, QWK (2018/08/17)
     Route: 051
  8. OXAROL [Concomitant]
     Active Substance: MAXACALCITOL
     Dosage: 5 MICROGRAM, 3 TIMES/WK
     Route: 051
     Dates: start: 20190315
  9. PARSABIV [Suspect]
     Active Substance: ETELCALCETIDE HYDROCHLORIDE
     Indication: HYPERPARATHYROIDISM SECONDARY
     Dosage: 5 MILLIGRAM, 3 TIMES/WK
     Route: 010
     Dates: start: 20180723, end: 20180815
  10. RIONA [Concomitant]
     Active Substance: FERRIC CITRATE ANHYDROUS
     Dosage: 250 MILLIGRAM, QD
     Route: 048

REACTIONS (5)
  - Shunt occlusion [Recovered/Resolved]
  - Bile duct obstruction [Recovered/Resolved]
  - Cardiac failure [Recovering/Resolving]
  - Cellulitis [Recovering/Resolving]
  - Gallbladder cancer [Not Recovered/Not Resolved]

NARRATIVE: CASE EVENT DATE: 20181217
